FAERS Safety Report 17423756 (Version 2)
Quarter: 2020Q4

REPORT INFORMATION
  Report Type: Spontaneous
  Country: US (occurrence: US)
  Receive Date: 20200217
  Receipt Date: 20201103
  Transmission Date: 20210113
  Serious: No
  Sender: FDA-Public Use
  Company Number: US-CELGENEUS-USA-20200203585

PATIENT
  Age: 68 Year
  Sex: Male

DRUGS (4)
  1. KYPROLIS [Concomitant]
     Active Substance: CARFILZOMIB
     Indication: PLASMA CELL MYELOMA
     Route: 065
     Dates: end: 202006
  2. REVLIMID [Suspect]
     Active Substance: LENALIDOMIDE
     Dosage: 25 MILLIGRAM
     Route: 048
     Dates: start: 202002, end: 202002
  3. REVLIMID [Suspect]
     Active Substance: LENALIDOMIDE
     Indication: PLASMA CELL MYELOMA
     Route: 048
     Dates: start: 201804
  4. REVLIMID [Suspect]
     Active Substance: LENALIDOMIDE
     Dosage: 10 MILLIGRAM
     Route: 048
     Dates: start: 201805

REACTIONS (1)
  - Plasma cell myeloma recurrent [Recovering/Resolving]

NARRATIVE: CASE EVENT DATE: 202002
